FAERS Safety Report 8389857-X (Version None)
Quarter: 2012Q2

REPORT INFORMATION
  Report Type: 
  Country: None (occurrence: None)
  Receive Date: 20120522
  Receipt Date: 20120515
  Transmission Date: 20120825
  Serious: Yes (Life-Threatening, Hospitalization, Disabling, Other)
  Sender: FDA-Public Use
  Company Number: 2012SP026073

PATIENT
  Age: 58 Year
  Sex: Male

DRUGS (5)
  1. VICTRELIS [Suspect]
     Indication: HEPATITIS C
     Dosage: 800 MG;Q8H;PO
     Route: 048
     Dates: start: 20120101
  2. RIBASPHERE [Suspect]
     Indication: HEPATITIS C
     Dosage: 1000 MG;BID
     Dates: start: 20120322
  3. PEGASYS [Suspect]
     Indication: HEPATITIS C
     Dosage: 180 MCG;QW
     Dates: start: 20120322
  4. NORVASC [Suspect]
     Indication: PRODUCT USED FOR UNKNOWN INDICATION
     Dosage: 10 MG;QD
  5. BENAZEPRIL HYDROCHLORIDE W/ HYDROCHLOROTHIAZ. [Concomitant]

REACTIONS (7)
  - BLOOD PRESSURE DIASTOLIC DECREASED [None]
  - ABDOMINAL PAIN UPPER [None]
  - ARTHRALGIA [None]
  - HYPOTENSION [None]
  - ASTHENIA [None]
  - DIZZINESS [None]
  - HEADACHE [None]
